FAERS Safety Report 6507192-9 (Version None)
Quarter: 2009Q4

REPORT INFORMATION
  Report Type: 
  Country: None (occurrence: None)
  Receive Date: 20091221
  Receipt Date: 20091211
  Transmission Date: 20100525
  Serious: Yes (Hospitalization)
  Sender: FDA-Public Use
  Company Number: PHHO2009IT14727

PATIENT
  Sex: Male
  Weight: 80 kg

DRUGS (2)
  1. NEORAL [Suspect]
     Indication: HEART TRANSPLANT
     Dosage: 1.5 MG, BID
     Route: 048
     Dates: start: 20091116, end: 20091210
  2. CERTICAN [Suspect]
     Indication: HEART TRANSPLANT
     Dosage: UNK
     Dates: end: 20091127

REACTIONS (12)
  - BLOOD CREATINE INCREASED [None]
  - COGNITIVE DISORDER [None]
  - CONCOMITANT DISEASE PROGRESSION [None]
  - CONFUSIONAL STATE [None]
  - DYSPNOEA [None]
  - ENDOTRACHEAL INTUBATION [None]
  - HAEMODIALYSIS [None]
  - PERICARDIAL EFFUSION [None]
  - PLEURAL EFFUSION [None]
  - RENAL FAILURE ACUTE [None]
  - RENAL IMPAIRMENT [None]
  - THORACIC CAVITY DRAINAGE [None]
